FAERS Safety Report 6810080-1 (Version None)
Quarter: 2010Q2

REPORT INFORMATION
  Report Type: 
  Country: None (occurrence: None)
  Receive Date: 20100630
  Receipt Date: 20100621
  Transmission Date: 20101027
  Serious: Yes (Other)
  Sender: FDA-Public Use
  Company Number: BR-ROCHE-711265

PATIENT
  Sex: Female
  Weight: 61 kg

DRUGS (7)
  1. ROACUTAN [Suspect]
     Indication: ACNE
     Dosage: STRENGTH:10MG
     Route: 048
     Dates: start: 20090801, end: 20091001
  2. ROACUTAN [Suspect]
     Dosage: STRENGTH:20MG
     Route: 048
     Dates: start: 20091001, end: 20091101
  3. ROACUTAN [Suspect]
     Dosage: STRENGTH:10 MG
     Route: 048
     Dates: start: 20091101, end: 20100513
  4. TYLENOL [Concomitant]
     Indication: SINUSITIS
     Dosage: FORM:TAB OR DROP
     Route: 048
  5. NIMESULIDE [Concomitant]
     Indication: SINUSITIS
     Dosage: SPORADICALLY
  6. LEVOTHYROXINE SODIUM [Concomitant]
     Indication: HYPOTHYROIDISM
     Dosage: FASTING
     Route: 048
     Dates: start: 19880101, end: 20100501
  7. LEVOTHYROXINE SODIUM [Concomitant]
     Dosage: FASTING
     Route: 048
     Dates: start: 20100501

REACTIONS (1)
  - PREMATURE SEPARATION OF PLACENTA [None]
